FAERS Safety Report 17911546 (Version 1)
Quarter: 2020Q2

REPORT INFORMATION
  Report Type: Spontaneous
  Country: US (occurrence: US)
  Receive Date: 20200617
  Receipt Date: 20200617
  Transmission Date: 20200714
  Serious: No
  Sender: FDA-Public Use
  Company Number: None

PATIENT
  Sex: Female

DRUGS (4)
  1. KISQALI [Suspect]
     Active Substance: RIBOCICLIB
     Indication: BREAST CANCER FEMALE
     Dosage: PO 21 D ON 7 D OFF
     Route: 048
     Dates: start: 20181109
  2. DICLOFENAC [Concomitant]
     Active Substance: DICLOFENAC
  3. ZOLEDORNIC [Concomitant]
  4. LETROZOLE. [Concomitant]
     Active Substance: LETROZOLE

REACTIONS (2)
  - Dry skin [None]
  - Eye disorder [None]
